FAERS Safety Report 21159684 (Version 1)
Quarter: 2022Q3

REPORT INFORMATION
  Report Type: Spontaneous
  Country: US (occurrence: None)
  Receive Date: 20220801
  Receipt Date: 20220801
  Transmission Date: 20221027
  Serious: No
  Sender: FDA-Public Use
  Company Number: None

PATIENT
  Age: 4 Year
  Sex: Male

DRUGS (1)
  1. BETHKIS [Suspect]
     Active Substance: TOBRAMYCIN
     Dosage: TWICE A DAY?
     Route: 055
     Dates: start: 20220601

REACTIONS (1)
  - Influenza [None]

NARRATIVE: CASE EVENT DATE: 20220801
